FAERS Safety Report 4779457-2 (Version None)
Quarter: 2005Q3

REPORT INFORMATION
  Report Type: 
  Country: None (occurrence: None)
  Receive Date: 20050923
  Receipt Date: 20050601
  Transmission Date: 20060218
  Serious: Yes (Hospitalization, Other)
  Sender: FDA-Public Use
  Company Number: USA050597990

PATIENT
  Age: 49 Year
  Sex: Female

DRUGS (3)
  1. EVISTA [Suspect]
     Indication: OSTEOPOROSIS
     Dosage: UNK
     Dates: start: 19980101
  2. FORTEO [Suspect]
     Indication: BONE DENSITY DECREASED
     Dosage: 20 UG
     Dates: start: 20050505
  3. ACTONEL [Concomitant]

REACTIONS (9)
  - ACCIDENT [None]
  - DRUG INEFFECTIVE [None]
  - FALL [None]
  - INJECTION SITE ERYTHEMA [None]
  - INTERVERTEBRAL DISC PROTRUSION [None]
  - LIMB INJURY [None]
  - MENISCUS LESION [None]
  - OSTEOPOROSIS [None]
  - SPINAL FRACTURE [None]
